FAERS Safety Report 22721517 (Version 2)
Quarter: 2024Q3

REPORT INFORMATION
  Report Type: Spontaneous
  Country: US (occurrence: US)
  Receive Date: 20230719
  Receipt Date: 20240723
  Transmission Date: 20241016
  Serious: Yes (Other)
  Sender: OTSUKA
  Company Number: US-OTSUKA-2023_017057

PATIENT
  Age: 3 Decade
  Sex: Female

DRUGS (4)
  1. REXULTI [Suspect]
     Active Substance: BREXPIPRAZOLE
     Indication: Affective disorder
     Dosage: 4 MG
     Route: 065
  2. REXULTI [Suspect]
     Active Substance: BREXPIPRAZOLE
     Dosage: 6 MG
     Route: 065
  3. REXULTI [Suspect]
     Active Substance: BREXPIPRAZOLE
     Dosage: 4 MG
     Route: 065
  4. LITHIUM [Concomitant]
     Active Substance: LITHIUM
     Indication: Product used for unknown indication
     Dosage: UNK
     Route: 065

REACTIONS (6)
  - Tardive dyskinesia [Unknown]
  - Withdrawal syndrome [Unknown]
  - Anxiety [Unknown]
  - Prescribed overdose [Unknown]
  - Therapy cessation [Unknown]
  - Product use in unapproved indication [Unknown]
